FAERS Safety Report 12276958 (Version 1)
Quarter: 2016Q2

REPORT INFORMATION
  Report Type: Spontaneous
  Country: US (occurrence: US)
  Receive Date: 20160418
  Receipt Date: 20160418
  Transmission Date: 20160815
  Serious: Yes (Other)
  Sender: FDA-Public Use
  Company Number: US-MDT-ADR-2016-00689

PATIENT
  Age: 55 Year
  Sex: Female

DRUGS (3)
  1. BACLOFEN, UNKNOWN [Suspect]
     Active Substance: BACLOFEN
     Indication: PAIN
     Route: 037
  2. CLORAZEPAM [Suspect]
     Active Substance: CLONAZEPAM
     Route: 037
  3. MORPHINE DRUG, UNKNOWN [Suspect]
     Active Substance: MORPHINE
     Route: 037

REACTIONS (3)
  - Pain [Unknown]
  - Off label use [None]
  - Drug withdrawal syndrome [Unknown]
